FAERS Safety Report 6772651-0 (Version None)
Quarter: 2010Q2

REPORT INFORMATION
  Report Type: 
  Country: None (occurrence: None)
  Receive Date: 20100614
  Receipt Date: 20100603
  Transmission Date: 20101027
  Serious: Yes (Death, Hospitalization, Other)
  Sender: FDA-Public Use
  Company Number: 2010AC000464

PATIENT
  Age: 83 Year
  Sex: Female

DRUGS (1)
  1. DIGOXIN [Suspect]
     Indication: TACHYCARDIA
     Dosage: 0.125 MG; PO
     Route: 048

REACTIONS (13)
  - ABNORMAL BEHAVIOUR [None]
  - ANHEDONIA [None]
  - CARDIAC DISORDER [None]
  - CARDIO-RESPIRATORY ARREST [None]
  - CEREBROVASCULAR ACCIDENT [None]
  - CONFUSIONAL STATE [None]
  - DIZZINESS [None]
  - ECONOMIC PROBLEM [None]
  - EMOTIONAL DISORDER [None]
  - HALLUCINATION [None]
  - PAIN [None]
  - SOMNOLENCE [None]
  - THERAPEUTIC AGENT TOXICITY [None]
